FAERS Safety Report 21776152 (Version 1)
Quarter: 2022Q4

REPORT INFORMATION
  Report Type: Spontaneous
  Country: US (occurrence: US)
  Receive Date: 20221226
  Receipt Date: 20221226
  Transmission Date: 20230112
  Serious: No
  Sender: FDA-Public Use
  Company Number: US-Accord-284215

PATIENT
  Sex: Female
  Weight: 52.16 kg

DRUGS (1)
  1. BUPROPION HYDROCHLORIDE [Suspect]
     Active Substance: BUPROPION HYDROCHLORIDE
     Indication: Depression
     Dosage: EXTENDED- RELEASE TABLETS, ONCE A DAY
     Route: 048
     Dates: start: 202207

REACTIONS (1)
  - Product odour abnormal [Unknown]
